FAERS Safety Report 26045705 (Version 1)
Quarter: 2025Q4

REPORT INFORMATION
  Report Type: Spontaneous
  Country: US (occurrence: None)
  Receive Date: 20251113
  Receipt Date: 20251113
  Transmission Date: 20260118
  Serious: Yes (Other)
  Sender: FDA-CTU
  Company Number: None

PATIENT
  Age: 99 Year
  Sex: Male

DRUGS (24)
  1. COLLAGENASE SANTYL [Suspect]
     Active Substance: COLLAGENASE CLOSTRIDIUM HISTOLYTICUM
     Indication: Wound
     Dosage: UNKNOWN DAILY TOPICAL
     Route: 061
     Dates: start: 20251013
  2. TRAZODONE [Concomitant]
     Active Substance: TRAZODONE HYDROCHLORIDE
  3. TAMSULOSIN [Concomitant]
     Active Substance: TAMSULOSIN
  4. METOPROLOL SUCCINATE [Concomitant]
     Active Substance: METOPROLOL SUCCINATE
  5. GABAPENTIN [Concomitant]
     Active Substance: GABAPENTIN
  6. FINASTERIDE [Concomitant]
     Active Substance: FINASTERIDE
  7. ESCITALOPRAM [Concomitant]
     Active Substance: ESCITALOPRAM OXALATE
  8. VITAMIN D3 [Concomitant]
     Active Substance: CHOLECALCIFEROL
  9. ATORVASTATIN [Concomitant]
     Active Substance: ATORVASTATIN
  10. SILVER SULFADIAZINE 1% CREAM [Concomitant]
  11. SULFAMETHOXAZOLE\TRIMETHOPRIM [Concomitant]
     Active Substance: SULFAMETHOXAZOLE\TRIMETHOPRIM
  12. DICLOFENAC [Concomitant]
     Active Substance: DICLOFENAC
  13. PANTOPRAZOLE [Concomitant]
     Active Substance: PANTOPRAZOLE
  14. FLUTICASONE 50MCG NASAL SP [Concomitant]
  15. ELIOUIS [Concomitant]
  16. FAMOTIDINE [Concomitant]
     Active Substance: FAMOTIDINE
  17. TRIAMCINOLONE ACETONIDE [Concomitant]
     Active Substance: TRIAMCINOLONE ACETONIDE
  18. PREDNISONE [Concomitant]
     Active Substance: PREDNISONE
  19. NALTREXONE [Concomitant]
     Active Substance: NALTREXONE
  20. TACROLIMUS [Concomitant]
     Active Substance: TACROLIMUS
  21. ALLOPURINOL [Concomitant]
     Active Substance: ALLOPURINOL
  22. OMEPRAZOLE [Concomitant]
     Active Substance: OMEPRAZOLE
  23. MONTELUKAST [Concomitant]
     Active Substance: MONTELUKAST
  24. PITAVASTATIN [Concomitant]
     Active Substance: PITAVASTATIN

REACTIONS (1)
  - Cerebrovascular accident [None]
